FAERS Safety Report 8312414-8 (Version None)
Quarter: 2012Q2

REPORT INFORMATION
  Report Type: 
  Country: None (occurrence: None)
  Receive Date: 20120425
  Receipt Date: 20120423
  Transmission Date: 20120825
  Serious: Yes (Hospitalization)
  Sender: FDA-Public Use
  Company Number: DK-AMGEN-DNKCT2012025574

PATIENT
  Age: 67 Year
  Sex: Male
  Weight: 77 kg

DRUGS (6)
  1. RITUXIMAB [Concomitant]
     Indication: NEOPLASM MALIGNANT
     Dosage: 750 MG, UNK
     Route: 042
     Dates: start: 20110117
  2. VINCRISTINE [Concomitant]
     Indication: NEOPLASM MALIGNANT
     Dosage: 20 MG, UNK
     Dates: start: 20110117
  3. CYCLOPHOSPHAMIDE [Concomitant]
     Indication: NEOPLASM MALIGNANT
     Dosage: 1600 MG, UNK
     Route: 042
     Dates: start: 20110117
  4. PEGFILGRASTIM [Suspect]
     Indication: NEOPLASM MALIGNANT
     Dosage: 6 MG, UNK
     Route: 058
     Dates: start: 20110120
  5. DOXORUBICIN HCL [Concomitant]
     Indication: NEOPLASM MALIGNANT
     Dosage: 105 MG, UNK
     Dates: start: 20110117
  6. PREDNISOLONE [Concomitant]
     Indication: NEOPLASM MALIGNANT
     Dosage: 100 MG, UNK
     Route: 048
     Dates: start: 20110117

REACTIONS (1)
  - HAEMOGLOBIN DECREASED [None]
